FAERS Safety Report 8571540-9 (Version None)
Quarter: 2012Q3

REPORT INFORMATION
  Report Type: 
  Country: None (occurrence: None)
  Receive Date: 20120806
  Receipt Date: 20120730
  Transmission Date: 20120928
  Serious: Yes (Hospitalization, Other)
  Sender: FDA-Public Use
  Company Number: PHHY2012BR066215

PATIENT
  Sex: Female

DRUGS (1)
  1. FORMOTEROL FUMARATE [Suspect]
     Indication: WHEEZING
     Dosage: TWICE DAILY

REACTIONS (2)
  - HEADACHE [None]
  - GASTROINTESTINAL CARCINOMA [None]
